FAERS Safety Report 9445097 (Version 2)
Quarter: 2013Q3

REPORT INFORMATION
  Report Type: Report from Study
  Country: US (occurrence: US)
  Receive Date: 20130807
  Receipt Date: 20130920
  Transmission Date: 20140515
  Serious: Yes (Hospitalization)
  Sender: FDA-Public Use
  Company Number: US-JNJFOC-20130719055

PATIENT
  Age: 11 Year
  Sex: Female
  Weight: 45.2 kg

DRUGS (12)
  1. REMICADE [Suspect]
     Indication: COLITIS ULCERATIVE
     Route: 042
     Dates: start: 20130501
  2. BENTYL [Concomitant]
     Route: 065
  3. ERGOCALCIFEROL [Concomitant]
     Route: 065
  4. NEXIUM [Concomitant]
     Route: 065
  5. FERROUS SULFATE [Concomitant]
     Route: 065
  6. FOLIC ACID [Concomitant]
     Route: 065
  7. PROBIOTICS [Concomitant]
     Indication: COLITIS ULCERATIVE
     Route: 065
  8. 5-ASA [Concomitant]
     Indication: COLITIS ULCERATIVE
     Route: 048
  9. 5-ASA [Concomitant]
     Indication: COLITIS ULCERATIVE
     Route: 054
  10. ONDANSETRON [Concomitant]
     Route: 065
  11. PREDNISONE [Concomitant]
     Indication: COLITIS ULCERATIVE
     Route: 065
  12. PHENERGAN [Concomitant]
     Route: 065

REACTIONS (1)
  - Colitis ulcerative [Recovered/Resolved]
